FAERS Safety Report 5031860-1 (Version None)
Quarter: 2006Q2

REPORT INFORMATION
  Report Type: 
  Country: None (occurrence: None)
  Receive Date: 20060621
  Receipt Date: 20060309
  Transmission Date: 20061013
  Serious: Yes (Hospitalization)
  Sender: FDA-Public Use
  Company Number: US-AMGEN-US171763

PATIENT
  Sex: Male

DRUGS (1)
  1. ARANESP [Suspect]
     Indication: DIALYSIS
     Dates: start: 20050701

REACTIONS (3)
  - ASTHENIA [None]
  - COUGH [None]
  - THERAPEUTIC RESPONSE DECREASED [None]
